FAERS Safety Report 12882817 (Version 1)
Quarter: 2016Q4

REPORT INFORMATION
  Report Type: Not Available
  Country: None (occurrence: US)
  Receive Date: 20161025
  Receipt Date: 20161025
  Transmission Date: 20170207
  Serious: No
  Sender: FDA-Public Use
  Company Number: US-AKORN-36231

PATIENT
  Age: 84 Year
  Sex: Female
  Weight: 84 kg

DRUGS (1)
  1. DORZOLAMIDE HCL OPHTHALMIC SOLUTION [Suspect]
     Active Substance: DORZOLAMIDE HYDROCHLORIDE

REACTIONS (2)
  - Hypoaesthesia [None]
  - Hypoaesthesia eye [None]
